FAERS Safety Report 6398887-9 (Version None)
Quarter: 2009Q4

REPORT INFORMATION
  Report Type: 
  Country: None (occurrence: None)
  Receive Date: 20091013
  Receipt Date: 20091001
  Transmission Date: 20100525
  Serious: Yes (Other)
  Sender: FDA-Public Use
  Company Number: PHHO2009US12096

PATIENT
  Age: 21 Month
  Sex: Male

DRUGS (1)
  1. EXFORGE [Suspect]

REACTIONS (1)
  - ACCIDENTAL DRUG INTAKE BY CHILD [None]
